FAERS Safety Report 15457009 (Version 1)
Quarter: 2018Q4

REPORT INFORMATION
  Report Type: Spontaneous
  Country: US (occurrence: US)
  Receive Date: 20181002
  Receipt Date: 20181002
  Transmission Date: 20190204
  Serious: No
  Sender: FDA-Public Use
  Company Number: US-ACTELION-A-NJ2018-170178

PATIENT
  Age: 68 Year
  Sex: Female

DRUGS (12)
  1. MULTIVITAMINS [Concomitant]
     Active Substance: VITAMINS
     Dosage: UNK UNK, QD
  2. ATORVASTATIN AXAPHARM [Concomitant]
     Dosage: 20 MG, QPM
  3. OCUVITE [Concomitant]
     Active Substance: VITAMINS
     Dosage: UNK, QD
  4. SILDENAFIL. [Concomitant]
     Active Substance: SILDENAFIL
     Dosage: UNK
     Dates: start: 2018
  5. RANITIDINE. [Concomitant]
     Active Substance: RANITIDINE
     Dosage: 30 MG, QD
  6. COQ10 [Concomitant]
     Active Substance: UBIDECARENONE
     Dosage: 200 MG, QD
  7. LOSARTAN AND HYDROCHLOROTHIAZIDE [Concomitant]
     Active Substance: HYDROCHLOROTHIAZIDE\LOSARTAN POTASSIUM
     Dosage: 100/12.5 MG QD IN AM
  8. MEGARED OMEGA 3 KRILL OIL [Concomitant]
     Dosage: UNK, QD
  9. OPSUMIT [Suspect]
     Active Substance: MACITENTAN
     Dosage: 10 MG, QD
     Route: 048
     Dates: start: 201703
  10. AMITRIPTYLINE [Concomitant]
     Active Substance: AMITRIPTYLINE
     Dosage: 25 MG, QPM
  11. OPSUMIT [Suspect]
     Active Substance: MACITENTAN
     Indication: PULMONARY ARTERIAL HYPERTENSION
     Dosage: 10 MG, QD
     Route: 048
     Dates: start: 20180412
  12. AMLODIPINE BESYLATE. [Concomitant]
     Active Substance: AMLODIPINE BESYLATE
     Dosage: 5 MG, QAM

REACTIONS (4)
  - Fluid retention [Recovering/Resolving]
  - Headache [Unknown]
  - Cough [Unknown]
  - Oedema peripheral [Unknown]

NARRATIVE: CASE EVENT DATE: 201703
